FAERS Safety Report 14000163 (Version 1)
Quarter: 2017Q3

REPORT INFORMATION
  Report Type: Spontaneous
  Country: US (occurrence: None)
  Receive Date: 20170922
  Receipt Date: 20170922
  Transmission Date: 20171128
  Serious: Yes (Life-Threatening, Hospitalization, Disabling)
  Sender: FDA-Public Use
  Company Number: None

PATIENT
  Sex: Female
  Weight: 77.11 kg

DRUGS (1)
  1. NEXPLANON [Suspect]
     Active Substance: ETONOGESTREL
     Indication: CONTRACEPTION
     Dosage: ALL DAY GIVEN INTO/UNDER THE SKIN
     Route: 058
     Dates: start: 20160107, end: 20160327

REACTIONS (4)
  - Menorrhagia [None]
  - Platelet count decreased [None]
  - Blood iron decreased [None]
  - Dizziness [None]

NARRATIVE: CASE EVENT DATE: 20160207
